FAERS Safety Report 18800068 (Version 2)
Quarter: 2021Q1

REPORT INFORMATION
  Report Type: Spontaneous
  Country: DK (occurrence: DK)
  Receive Date: 20210128
  Receipt Date: 20210201
  Transmission Date: 20210419
  Serious: Yes (Life-Threatening)
  Sender: FDA-Public Use
  Company Number: DK-PFIZER INC-2021061485

PATIENT
  Age: 27 Year
  Sex: Female

DRUGS (1)
  1. INFLIXIMAB [Suspect]
     Active Substance: INFLIXIMAB
     Indication: PSORIATIC ARTHROPATHY
     Dosage: UNK,  4.5 YEARS

REACTIONS (4)
  - Fatigue [Unknown]
  - Myalgia [Unknown]
  - Hemiparesis [Recovering/Resolving]
  - Cognitive disorder [Recovered/Resolved]
